FAERS Safety Report 18086239 (Version 1)
Quarter: 2020Q3

REPORT INFORMATION
  Report Type: Spontaneous
  Country: DE (occurrence: DE)
  Receive Date: 20200728
  Receipt Date: 20200728
  Transmission Date: 20201103
  Serious: Yes (Hospitalization, Disabling, Other)
  Sender: FDA-Public Use
  Company Number: DE-009507513-2006DEU010490

PATIENT
  Sex: Male
  Weight: 83 kg

DRUGS (12)
  1. KEYTRUDA [Suspect]
     Active Substance: PEMBROLIZUMAB
     Indication: RENAL CELL CARCINOMA
     Dosage: 200 MG EVERY 3 WEEKS
     Dates: start: 20200416, end: 20200511
  2. ACC (ACETYLCYSTEINE) [Concomitant]
     Active Substance: ACETYLCYSTEINE
     Dosage: 600
  3. LAXOBERAL [Concomitant]
     Active Substance: SODIUM PICOSULFATE
  4. DICLOFENAC [Concomitant]
     Active Substance: DICLOFENAC
  5. METOHEXAL [Concomitant]
     Active Substance: METOPROLOL
  6. POLYETHYLENE GLYCOL [Concomitant]
     Active Substance: POLYETHYLENE GLYCOLS
  7. AXITINIB [Suspect]
     Active Substance: AXITINIB
     Indication: RENAL CELL CARCINOMA
     Dosage: 2X5 MG
     Dates: start: 20200416, end: 20200507
  8. PYRIDOSTIGMINE BROMIDE. [Suspect]
     Active Substance: PYRIDOSTIGMINE BROMIDE
  9. ATORVASTATIN [Concomitant]
     Active Substance: ATORVASTATIN
  10. DOMPERIDONE [Concomitant]
     Active Substance: DOMPERIDONE
  11. ASPIRIN. [Concomitant]
     Active Substance: ASPIRIN
  12. INNOHEP [Concomitant]
     Active Substance: TINZAPARIN SODIUM
     Dosage: 4500 IU

REACTIONS (13)
  - Myasthenia gravis [Recovering/Resolving]
  - Myocardial necrosis marker increased [Unknown]
  - Myasthenic syndrome [Unknown]
  - Cerebral artery embolism [Unknown]
  - Lower motor neurone lesion [Unknown]
  - Diarrhoea [Unknown]
  - Dyspnoea [Unknown]
  - Myocarditis [Unknown]
  - Immune-mediated myositis [Unknown]
  - Osteolysis [Unknown]
  - Embolic cerebellar infarction [Unknown]
  - Malignant neoplasm progression [Unknown]
  - Hypercoagulation [Unknown]

NARRATIVE: CASE EVENT DATE: 202005
